FAERS Safety Report 7346723-6 (Version None)
Quarter: 2011Q1

REPORT INFORMATION
  Report Type: 
  Country: None (occurrence: None)
  Receive Date: 20110311
  Receipt Date: 20110309
  Transmission Date: 20110831
  Serious: Yes (Hospitalization)
  Sender: FDA-Public Use
  Company Number: CA-ABBOTT-11P-028-0710337-00

PATIENT
  Age: 42 Year
  Sex: Female

DRUGS (8)
  1. VIREAD [Interacting]
     Indication: PRODUCT USED FOR UNKNOWN INDICATION
  2. BLEOMYCIN SULPHATE USP [Concomitant]
     Indication: PRODUCT USED FOR UNKNOWN INDICATION
  3. VINBLASTINE SULFATE [Interacting]
     Indication: PRODUCT USED FOR UNKNOWN INDICATION
  4. TRIMETHOPRIM [Concomitant]
     Indication: PRODUCT USED FOR UNKNOWN INDICATION
  5. KALETRA [Suspect]
     Indication: PRODUCT USED FOR UNKNOWN INDICATION
  6. DACARBAZINE [Concomitant]
     Indication: PRODUCT USED FOR UNKNOWN INDICATION
     Route: 050
  7. DOXORUBICIN HCL [Concomitant]
     Indication: PRODUCT USED FOR UNKNOWN INDICATION
     Route: 050
  8. EMTRIVA [Interacting]
     Indication: PRODUCT USED FOR UNKNOWN INDICATION

REACTIONS (8)
  - ILEUS [None]
  - PYREXIA [None]
  - NEUTROPENIA [None]
  - AUTONOMIC NEUROPATHY [None]
  - POTENTIATING DRUG INTERACTION [None]
  - VOMITING [None]
  - ABDOMINAL DISTENSION [None]
  - ABDOMINAL PAIN [None]
